FAERS Safety Report 8128501-3 (Version None)
Quarter: 2012Q1

REPORT INFORMATION
  Report Type: 
  Country: None (occurrence: None)
  Receive Date: 20120210
  Receipt Date: 20120207
  Transmission Date: 20120608
  Serious: Yes (Hospitalization)
  Sender: FDA-Public Use
  Company Number: NO-EISAI INC-E2020-10292-SPO-NO

PATIENT
  Sex: Female

DRUGS (7)
  1. MONOKET OD [Concomitant]
  2. WARFARIN SODIUM [Concomitant]
  3. METOCLOPRAMIDE [Concomitant]
  4. ENALAPRIL MALEATE [Concomitant]
  5. DONEPEZIL HCL [Suspect]
     Route: 048
     Dates: start: 20110411, end: 20110501
  6. DIGITOXIN INJ [Concomitant]
  7. DONEPEZIL HCL [Suspect]
     Route: 048
     Dates: start: 20110501, end: 20110816

REACTIONS (1)
  - THROMBOCYTOPENIA [None]
